FAERS Safety Report 8549269-2 (Version None)
Quarter: 2012Q3

REPORT INFORMATION
  Report Type: 
  Country: None (occurrence: None)
  Receive Date: 20120720
  Receipt Date: 20120720
  Transmission Date: 20120928
  Serious: Yes (Other)
  Sender: FDA-Public Use
  Company Number: None

PATIENT
  Sex: Male

DRUGS (2)
  1. DIPHENHYDRAMINE HCL [Suspect]
     Indication: HYPERSENSITIVITY
     Dosage: 50MG ONCE IV BOLUS
     Route: 040
     Dates: start: 20120301, end: 20120710
  2. DIPHENHYDRAMINE HCL [Suspect]
     Indication: URTICARIA
     Dosage: 50MG ONCE IV BOLUS
     Route: 040
     Dates: start: 20120301, end: 20120710

REACTIONS (3)
  - COUGH [None]
  - CONVULSION [None]
  - DYSPHONIA [None]
